FAERS Safety Report 7771825-X (Version None)
Quarter: 2011Q3

REPORT INFORMATION
  Report Type: 
  Country: None (occurrence: None)
  Receive Date: 20110922
  Receipt Date: 20110918
  Transmission Date: 20111222
  Serious: Yes (Other)
  Sender: FDA-Public Use
  Company Number: US-VERTEX PHARMACEUTICALS INC.-AE-2011-001651

PATIENT
  Sex: Male
  Weight: 73.094 kg

DRUGS (7)
  1. RIBAVIRIN [Concomitant]
     Indication: HEPATITIS C
     Dates: start: 20110814
  2. PEGASYS [Concomitant]
     Indication: HEPATITIS C
     Dates: start: 20110814
  3. LISINOPRIL [Concomitant]
     Indication: BLOOD PRESSURE
     Route: 048
  4. FE [Concomitant]
     Indication: SUPPLEMENTATION THERAPY
     Route: 048
  5. HYDROCHLOROTHIAZIDE [Concomitant]
     Indication: BLOOD PRESSURE
     Route: 048
  6. INCIVEK [Suspect]
     Indication: HEPATITIS C
     Route: 048
     Dates: start: 20110814
  7. STEROID [Concomitant]
     Indication: BACK PAIN

REACTIONS (6)
  - SWELLING FACE [None]
  - OEDEMA PERIPHERAL [None]
  - DEHYDRATION [None]
  - ASTHENIA [None]
  - ANAEMIA [None]
  - DYSPNOEA [None]
